FAERS Safety Report 6924983-0 (Version None)
Quarter: 2010Q3

REPORT INFORMATION
  Report Type: 
  Country: None (occurrence: None)
  Receive Date: 20100816
  Receipt Date: 20100809
  Transmission Date: 20110219
  Serious: Yes (Other)
  Sender: FDA-Public Use
  Company Number: US-JNJFOC-20100502749

PATIENT
  Sex: Female

DRUGS (2)
  1. LEVAQUIN [Suspect]
     Indication: PNEUMONIA
     Route: 048
  2. LEVAQUIN [Suspect]
     Indication: BRONCHITIS
     Route: 048

REACTIONS (4)
  - BIPOLAR DISORDER [None]
  - EPICONDYLITIS [None]
  - ROTATOR CUFF SYNDROME [None]
  - TENDON RUPTURE [None]
